FAERS Safety Report 4372225-5 (Version None)
Quarter: 2004Q2

REPORT INFORMATION
  Report Type: 
  Country: None (occurrence: None)
  Receive Date: 20040602
  Receipt Date: 20040520
  Transmission Date: 20050107
  Serious: Yes (Hospitalization)
  Sender: FDA-Public Use
  Company Number: MK200405-0425-1

PATIENT
  Age: 24 Year
  Sex: Male

DRUGS (1)
  1. METHYLPHENIDATE HCL [Suspect]
     Dosage: 60MG, DAILY

REACTIONS (2)
  - CEREBRAL INFARCTION [None]
  - LACUNAR INFARCTION [None]
